FAERS Safety Report 4565149-1 (Version None)
Quarter: 2005Q1

REPORT INFORMATION
  Report Type: 
  Country: None (occurrence: None)
  Receive Date: 20050126
  Receipt Date: 20050114
  Transmission Date: 20050727
  Serious: Yes (Hospitalization, Disabling, Other)
  Sender: FDA-Public Use
  Company Number: 2004049304

PATIENT
  Age: 19 Year
  Sex: Male
  Weight: 70 kg

DRUGS (15)
  1. AZITHROMYCIN [Suspect]
     Indication: GASTROENTERITIS CRYPTOSPORIDIAL
     Dosage: 500 MG (500 MG, 1 IN 1 D), ORAL
     Route: 048
     Dates: start: 20040610, end: 20040803
  2. CYCLOSPORINE [Suspect]
     Indication: PROPHYLAXIS AGAINST TRANSPLANT REJECTION
     Dosage: 2 IN 1 D , INTRAVENOUS
     Route: 042
     Dates: start: 20040614, end: 20040906
  3. FLUDARABINE PHOSPHATE [Concomitant]
  4. MELPHALAN [Concomitant]
  5. ANTITHYMOCYTE IMMUNOGLOBULIN [Concomitant]
  6. METHOTREXATE [Concomitant]
  7. NEUPOGEN [Concomitant]
  8. ACYCLOVIR [Concomitant]
  9. IMMUNE GLOBULIN INTRAVENOUS (HUMAN) [Concomitant]
  10. ENOXAPARIN SODIUM [Concomitant]
  11. URSODEOXYCHOLIC ACID [Concomitant]
  12. LACTULOSE [Concomitant]
  13. CIPROFLOXACIN HYDROCHLORIDE [Concomitant]
  14. FLUCONAZOLE [Concomitant]
  15. BACTRIM [Concomitant]

REACTIONS (6)
  - APHASIA [None]
  - BLOOD BILIRUBIN INCREASED [None]
  - DIARRHOEA [None]
  - DYSKINESIA [None]
  - EPSTEIN-BARR VIRUS ANTIBODY POSITIVE [None]
  - VIRUS BODY FLUID IDENTIFIED [None]
